FAERS Safety Report 6210886-6 (Version None)
Quarter: 2009Q2

REPORT INFORMATION
  Report Type: 
  Country: None (occurrence: None)
  Receive Date: 20090527
  Receipt Date: 20090519
  Transmission Date: 20091009
  Serious: Yes (Death, Hospitalization, Other)
  Sender: FDA-Public Use
  Company Number: 2009US001850

PATIENT
  Age: 51 Year
  Sex: Male

DRUGS (5)
  1. PROGRAF [Suspect]
     Indication: LIVER TRANSPLANT
     Dosage: 6 MG, UID/QD, ORAL
     Route: 048
  2. SULFAMETHOXAZOLE AND TRIMETHOPRIM (SULFAMETHOXAZOLE, TRIMETHOPRIM) [Concomitant]
  3. ACYCLOVIR [Concomitant]
  4. INTRON A [Concomitant]
  5. RIBAVIRIN [Concomitant]

REACTIONS (16)
  - ASCITES [None]
  - COMPLICATIONS OF TRANSPLANTED LIVER [None]
  - CONFUSIONAL STATE [None]
  - ENTEROBACTER BACTERAEMIA [None]
  - FUNGAEMIA [None]
  - HEPATIC NECROSIS [None]
  - HEPATITIS C [None]
  - HYPOTHERMIA [None]
  - INFECTION IN AN IMMUNOCOMPROMISED HOST [None]
  - LEUKOCYTOSIS [None]
  - LEUKOPENIA [None]
  - LIVER FUNCTION TEST ABNORMAL [None]
  - PERITONITIS BACTERIAL [None]
  - RENAL FAILURE ACUTE [None]
  - RESPIRATORY FAILURE [None]
  - STAPHYLOCOCCAL BACTERAEMIA [None]
